FAERS Safety Report 8133920-5 (Version None)
Quarter: 2012Q1

REPORT INFORMATION
  Report Type: 
  Country: None (occurrence: None)
  Receive Date: 20120213
  Receipt Date: 20120202
  Transmission Date: 20120608
  Serious: Yes (Other)
  Sender: FDA-Public Use
  Company Number: FR-ASTRAZENECA-2012SE07837

PATIENT
  Sex: Female

DRUGS (9)
  1. LANSOPRAZOLE [Concomitant]
  2. CANDESARTAN CILEXETIL AND HYDROCHLOROTHIAZIDE [Suspect]
     Indication: HYPERTENSION
     Dosage: 16 MG / 12.5 MG ONCE DAILY
     Route: 048
  3. LEXOMIL [Concomitant]
  4. CANDESARTAN CILEXETIL AND HYDROCHLOROTHIAZIDE [Suspect]
     Dosage: 16 MG / 12.5 MG TWO OR THREE TABLETS DAILY
     Route: 048
  5. ATARAX [Concomitant]
  6. ZOLPIDEM [Concomitant]
  7. ACETAMINOPHEN [Concomitant]
  8. DIVINA [Concomitant]
  9. ASPIRIN [Concomitant]

REACTIONS (5)
  - HEADACHE [None]
  - FATIGUE [None]
  - HYPERTENSION [None]
  - DRUG INEFFECTIVE [None]
  - DRUG ABUSE [None]
